FAERS Safety Report 17611077 (Version 1)
Quarter: 2020Q2

REPORT INFORMATION
  Report Type: Spontaneous
  Country: US (occurrence: US)
  Receive Date: 20200401
  Receipt Date: 20200401
  Transmission Date: 20200713
  Serious: Yes (Other)
  Sender: FDA-Public Use
  Company Number: US-OSMOTICA_PHARMACEUTICAL_US_LLC-POI0573202000265

PATIENT
  Age: 42 Year
  Sex: Female

DRUGS (3)
  1. METHYLPHENIDATE HYDROCHLORIDE EXTENDED-RELEASE TABLETS [Suspect]
     Active Substance: METHYLPHENIDATE HYDROCHLORIDE
     Indication: ATTENTION DEFICIT HYPERACTIVITY DISORDER
     Dates: start: 20200206, end: 20200207
  2. EFFEXOR [Concomitant]
     Active Substance: VENLAFAXINE HYDROCHLORIDE
     Indication: ANXIETY
  3. WELLBUTRIN [Concomitant]
     Active Substance: BUPROPION HYDROCHLORIDE
     Indication: DEPRESSION
     Dates: start: 2010, end: 20200207

REACTIONS (19)
  - Suicidal ideation [Recovered/Resolved]
  - Headache [Recovered/Resolved]
  - Tachycardia [Recovered/Resolved]
  - Dry mouth [Recovered/Resolved]
  - Abdominal pain upper [Recovered/Resolved]
  - Drug ineffective [Recovered/Resolved]
  - Paraesthesia [Recovered/Resolved]
  - Personality change [Recovered/Resolved]
  - Irritability [Recovered/Resolved]
  - Feeling abnormal [Recovered/Resolved]
  - Dizziness [Recovered/Resolved]
  - Lethargy [Recovered/Resolved]
  - Coordination abnormal [Recovered/Resolved]
  - Tachyphrenia [Recovered/Resolved]
  - Fear [Recovered/Resolved]
  - Muscle twitching [Recovered/Resolved]
  - Hot flush [Recovered/Resolved]
  - Tremor [Recovered/Resolved]
  - Nausea [Recovered/Resolved]

NARRATIVE: CASE EVENT DATE: 20200206
